FAERS Safety Report 10031702 (Version 1)
Quarter: 2014Q1

REPORT INFORMATION
  Report Type: Spontaneous
  Country: US (occurrence: US)
  Receive Date: 20140324
  Receipt Date: 20140324
  Transmission Date: 20141002
  Serious: No
  Sender: FDA-Public Use
  Company Number: US-PFIZER INC-2014082452

PATIENT
  Age: 37 Year
  Sex: Female

DRUGS (4)
  1. LYRICA [Suspect]
     Indication: CARPAL TUNNEL SYNDROME
     Dosage: UNK
  2. CYMBALTA [Concomitant]
     Indication: DEPRESSION
     Dosage: UNK, DAILY
  3. TRAZODONE [Concomitant]
     Indication: DEPRESSION
     Dosage: UNK (AT NIGHT), DAILY
  4. CLONAZEPAM [Concomitant]
     Indication: ANXIETY
     Dosage: UNK (AT NIGHT), DAILY

REACTIONS (1)
  - Mood swings [Unknown]
